FAERS Safety Report 6139141-X (Version None)
Quarter: 2009Q2

REPORT INFORMATION
  Report Type: 
  Country: None (occurrence: None)
  Receive Date: 20090401
  Receipt Date: 20090320
  Transmission Date: 20091009
  Serious: Yes (Death, Hospitalization)
  Sender: FDA-Public Use
  Company Number: PFIZER INC-2007067833

PATIENT
  Sex: Female
  Weight: 74 kg

DRUGS (5)
  1. IDARUBICIN HCL [Suspect]
     Indication: ACUTE MYELOID LEUKAEMIA
     Dosage: 16.9 MG, 1X/DAY
     Route: 042
     Dates: start: 20070730, end: 20070801
  2. CYTARABINE [Suspect]
     Indication: ACUTE MYELOID LEUKAEMIA
     Dosage: TDD: 5640 MG
     Route: 042
     Dates: start: 20070730, end: 20070806
  3. ETOPOSIDE [Suspect]
     Indication: ACUTE MYELOID LEUKAEMIA
     Dosage: 141 MG, 1X/DAY
     Route: 042
     Dates: start: 20070730, end: 20070805
  4. PALIFERMIN [Suspect]
     Indication: ACUTE MYELOID LEUKAEMIA
     Dosage: 4.49 MG, 1X/DAY
     Route: 042
     Dates: start: 20070727, end: 20070809
  5. PEGFILGRASTIM [Suspect]
     Indication: ACUTE MYELOID LEUKAEMIA
     Dosage: 6 MG, 1X/DAY
     Route: 058
     Dates: start: 20070807, end: 20070807

REACTIONS (2)
  - FEBRILE NEUTROPENIA [None]
  - INTESTINAL OBSTRUCTION [None]
